FAERS Safety Report 16745440 (Version 1)
Quarter: 2019Q3

REPORT INFORMATION
  Report Type: Spontaneous
  Country: US (occurrence: US)
  Receive Date: 20190802
  Receipt Date: 20190802
  Transmission Date: 20191005
  Serious: Yes (Hospitalization)
  Sender: FDA-Public Use
  Company Number: None

PATIENT
  Age: 77 Year
  Sex: Male

DRUGS (10)
  1. HYDROCORTISONE. [Concomitant]
     Active Substance: HYDROCORTISONE
  2. ALBUTEROL. [Concomitant]
     Active Substance: ALBUTEROL
  3. ASPIRIN. [Concomitant]
     Active Substance: ASPIRIN
  4. DILTIAZEM. [Concomitant]
     Active Substance: DILTIAZEM
  5. CHLORHEXADINE [Concomitant]
     Active Substance: CHLORHEXIDINE
  6. FUROSEMIDE. [Concomitant]
     Active Substance: FUROSEMIDE
  7. ENOXAPARIN [Suspect]
     Active Substance: ENOXAPARIN
     Indication: ATRIAL FIBRILLATION
     Route: 058
     Dates: start: 20190225, end: 20190227
  8. ENOXAPARIN [Concomitant]
     Active Substance: ENOXAPARIN
  9. ACETAMINOPHEN. [Concomitant]
     Active Substance: ACETAMINOPHEN
  10. BECLOMETHASONE [Concomitant]
     Active Substance: BECLOMETHASONE

REACTIONS (2)
  - Haemorrhage [None]
  - Device related infection [None]

NARRATIVE: CASE EVENT DATE: 20190227
